FAERS Safety Report 5779168-0 (Version None)
Quarter: 2008Q2

REPORT INFORMATION
  Report Type: 
  Country: None (occurrence: None)
  Receive Date: 20080619
  Receipt Date: 20080609
  Transmission Date: 20081010
  Serious: Yes (Hospitalization)
  Sender: FDA-Public Use
  Company Number: US-JNJFOC-20080602288

PATIENT
  Sex: Female

DRUGS (2)
  1. REMICADE [Suspect]
     Indication: CROHN'S DISEASE
     Route: 042
  2. AZATHIOPRINE [Concomitant]

REACTIONS (4)
  - ADRENAL SUPPRESSION [None]
  - PNEUMONIA STAPHYLOCOCCAL [None]
  - PNEUMONITIS [None]
  - ULCER [None]
